FAERS Safety Report 9864133 (Version 1)
Quarter: 2014Q1

REPORT INFORMATION
  Report Type: Spontaneous
  Country: AU (occurrence: AU)
  Receive Date: 20140203
  Receipt Date: 20140203
  Transmission Date: 20141002
  Serious: Yes (Hospitalization)
  Sender: FDA-Public Use
  Company Number: PHHY2014AU010453

PATIENT
  Age: 53 Year
  Sex: Female

DRUGS (2)
  1. CLOZAPINE [Suspect]
     Indication: SCHIZOPHRENIA
     Dates: start: 201205
  2. VALPROIC ACID [Concomitant]

REACTIONS (14)
  - Tubulointerstitial nephritis [Unknown]
  - Pyrexia [Unknown]
  - Abdominal pain [Unknown]
  - Diarrhoea [Unknown]
  - Proteinuria [Unknown]
  - Eosinophilia [Unknown]
  - Renal impairment [Recovering/Resolving]
  - Renal failure acute [Recovering/Resolving]
  - Tachycardia [Unknown]
  - Escherichia infection [Unknown]
  - Pneumonia [Unknown]
  - Hypotension [Unknown]
  - Tremor [Unknown]
  - Gait disturbance [Unknown]
